FAERS Safety Report 17880068 (Version 2)
Quarter: 2020Q2

REPORT INFORMATION
  Report Type: Report from Study
  Country: None (occurrence: IL)
  Receive Date: 20200610
  Receipt Date: 20200612
  Transmission Date: 20200714
  Serious: Yes (Hospitalization, Other)
  Sender: FDA-Public Use
  Company Number: IL-ABBVIE-20K-082-3353252-00

PATIENT
  Age: 80 Year
  Sex: Male
  Weight: 52 kg

DRUGS (16)
  1. CLEXANE [Concomitant]
     Active Substance: ENOXAPARIN SODIUM
     Indication: PROPHYLAXIS
     Dates: start: 20200328, end: 20200407
  2. TARGIN [Concomitant]
     Active Substance: NALOXONE HYDROCHLORIDE\OXYCODONE HYDROCHLORIDE
     Indication: MUSCULOSKELETAL PAIN
     Dates: start: 20200325, end: 20200411
  3. RENVELA [Concomitant]
     Active Substance: SEVELAMER CARBONATE
     Indication: PROPHYLAXIS
     Dates: start: 20200325
  4. CIPRODEX [Concomitant]
     Active Substance: CIPROFLOXACIN HYDROCHLORIDE\DEXAMETHASONE
     Indication: PROPHYLAXIS
     Dates: start: 20200413, end: 20200413
  5. VENCLEXTA [Suspect]
     Active Substance: VENETOCLAX
     Dosage: RAMP UP
     Route: 048
     Dates: start: 20200404, end: 20200404
  6. VENCLEXTA [Suspect]
     Active Substance: VENETOCLAX
     Route: 048
     Dates: start: 20200405
  7. AZACITIDINE. [Suspect]
     Active Substance: AZACITIDINE
     Dosage: CYCLE 2
     Route: 058
     Dates: start: 20200428, end: 20200504
  8. LOSEC [Concomitant]
     Active Substance: OMEPRAZOLE
     Indication: PROPHYLAXIS
     Dates: start: 20200327, end: 20200413
  9. VENCLEXTA [Suspect]
     Active Substance: VENETOCLAX
     Indication: ACUTE MYELOID LEUKAEMIA
     Dosage: RAMP UP
     Route: 048
     Dates: start: 20200329, end: 20200329
  10. AZENIL [Concomitant]
     Indication: PROPHYLAXIS
     Dates: start: 20200328, end: 20200402
  11. VENCLEXTA [Suspect]
     Active Substance: VENETOCLAX
     Dosage: INTERRUPTION PER INVESTIGATOR DECISION DUE TO TLS
     Route: 048
     Dates: start: 20200330, end: 20200331
  12. AZACITIDINE. [Suspect]
     Active Substance: AZACITIDINE
     Indication: ACUTE MYELOID LEUKAEMIA
     Dosage: CYCLE 1
     Route: 058
     Dates: start: 20200329, end: 20200404
  13. AZACITIDINE. [Suspect]
     Active Substance: AZACITIDINE
     Dosage: CYCLE 3
     Route: 058
     Dates: start: 20200531
  14. FUSID [Concomitant]
     Indication: PROPHYLAXIS
     Dates: start: 20200328, end: 20200412
  15. CALTRATE [Concomitant]
     Active Substance: CALCIUM CARBONATE
     Indication: HYPERPHOSPHATAEMIA
     Dates: start: 20200326, end: 20200413
  16. TAZOPIP [Concomitant]
     Active Substance: PIPERACETAZINE\TAZOBACTAM
     Indication: ANTIBIOTIC PROPHYLAXIS
     Dates: start: 20200325, end: 20200404

REACTIONS (8)
  - Dehydration [Recovered/Resolved]
  - Tumour lysis syndrome [Recovered/Resolved]
  - Neutrophil count decreased [Recovered/Resolved]
  - Pyrexia [Recovered/Resolved]
  - Confusional state [Not Recovered/Not Resolved]
  - Constipation [Recovered/Resolved]
  - Urinary tract obstruction [Recovered/Resolved]
  - Platelet count decreased [Recovered/Resolved]

NARRATIVE: CASE EVENT DATE: 20200331
